FAERS Safety Report 19684962 (Version 1)
Quarter: 2021Q3

REPORT INFORMATION
  Report Type: Spontaneous
  Country: US (occurrence: US)
  Receive Date: 20210811
  Receipt Date: 20210811
  Transmission Date: 20211014
  Serious: Yes (Other)
  Sender: FDA-Public Use
  Company Number: None

PATIENT
  Age: 65 Year
  Sex: Female
  Weight: 76.5 kg

DRUGS (11)
  1. METFORMIN [Concomitant]
     Active Substance: METFORMIN HYDROCHLORIDE
  2. COREG [Concomitant]
     Active Substance: CARVEDILOL
  3. AMIODARONE [Suspect]
     Active Substance: AMIODARONE
     Indication: VENTRICULAR EXTRASYSTOLES
     Dosage: ?          QUANTITY:2 TABLET(S);?
     Route: 048
     Dates: start: 20210210, end: 20210505
  4. ELIQUIS [Concomitant]
     Active Substance: APIXABAN
  5. MULTI VITAMIN [Concomitant]
     Active Substance: VITAMINS
  6. AMBIEN [Concomitant]
     Active Substance: ZOLPIDEM TARTRATE
  7. PRAVASTATIN. [Concomitant]
     Active Substance: PRAVASTATIN
  8. SPIRONOLACTONE. [Concomitant]
     Active Substance: SPIRONOLACTONE
  9. AMIODARONE [Suspect]
     Active Substance: AMIODARONE
     Indication: VENTRICULAR TACHYCARDIA
     Dosage: ?          QUANTITY:2 TABLET(S);?
     Route: 048
     Dates: start: 20210210, end: 20210505
  10. ENTRESTO [Concomitant]
     Active Substance: SACUBITRIL\VALSARTAN
  11. ZETIA [Concomitant]
     Active Substance: EZETIMIBE

REACTIONS (9)
  - Blood urine present [None]
  - Skin disorder [None]
  - Chest discomfort [None]
  - Respiration abnormal [None]
  - Burning sensation [None]
  - Pain [None]
  - Urinary tract infection [None]
  - Vision blurred [None]
  - Dry eye [None]

NARRATIVE: CASE EVENT DATE: 20200615
